FAERS Safety Report 17622598 (Version 1)
Quarter: 2020Q2

REPORT INFORMATION
  Report Type: Spontaneous
  Country: ES (occurrence: ES)
  Receive Date: 20200403
  Receipt Date: 20200403
  Transmission Date: 20200713
  Serious: Yes (Hospitalization)
  Sender: FDA-Public Use
  Company Number: ES-PFIZER INC-2020138337

PATIENT
  Age: 94 Year
  Sex: Female

DRUGS (12)
  1. LIXIANA [Concomitant]
     Active Substance: EDOXABAN TOSYLATE
  2. PANTOPRAZOLE [Concomitant]
     Active Substance: PANTOPRAZOLE
  3. DIGOXINA KERN PHARMA [Concomitant]
     Active Substance: DIGOXIN
  4. CLOPIDOGREL [Concomitant]
     Active Substance: CLOPIDOGREL BISULFATE
  5. EUTIROX [Concomitant]
     Active Substance: LEVOTHYROXINE SODIUM
  6. HALOPERIDOL. [Concomitant]
     Active Substance: HALOPERIDOL
  7. SERTRALINE HCL [Suspect]
     Active Substance: SERTRALINE HYDROCHLORIDE
     Indication: DEPRESSION
     Dosage: 20 MG/24H
     Route: 065
     Dates: start: 20200220, end: 20200224
  8. SOLIFENACINE [Concomitant]
     Active Substance: SOLIFENACIN
  9. PARACETAMOL [Concomitant]
     Active Substance: ACETAMINOPHEN
  10. ATORVASTATIN [Concomitant]
     Active Substance: ATORVASTATIN
  11. CIPROFLOXACIN. [Concomitant]
     Active Substance: CIPROFLOXACIN
  12. LOSARTAN. [Concomitant]
     Active Substance: LOSARTAN

REACTIONS (2)
  - Altered state of consciousness [Unknown]
  - Hyponatraemia [Unknown]

NARRATIVE: CASE EVENT DATE: 20200226
